FAERS Safety Report 5487261-5 (Version None)
Quarter: 2007Q4

REPORT INFORMATION
  Report Type: 
  Country: None (occurrence: None)
  Receive Date: 20071015
  Receipt Date: 20070927
  Transmission Date: 20080405
  Serious: Yes (Hospitalization)
  Sender: FDA-Public Use
  Company Number: 2007US002389

PATIENT
  Age: 3 Year
  Sex: Male
  Weight: 13.6 kg

DRUGS (9)
  1. PROGRAF [Suspect]
     Indication: RENAL TRANSPLANT
     Dosage: 1.4 MG, BID,; 2 MG, BID, ORAL
     Route: 048
     Dates: start: 20060623
  2. DACLIZUMAB(DACLIZUMAB) [Suspect]
     Indication: RENAL TRANSPLANT
  3. CALCIUM CARBONATE [Concomitant]
  4. FERROUS SULFATE TAB [Concomitant]
  5. PREVACID [Concomitant]
  6. CELLCEPT [Concomitant]
  7. BACTRIM (TRIMETHOPRIM) [Concomitant]
  8. ACETAMINOPHEN [Concomitant]
  9. ZOFRAN [Concomitant]

REACTIONS (4)
  - GASTROSTOMY CLOSURE [None]
  - IMMUNOSUPPRESSANT DRUG LEVEL DECREASED [None]
  - KIDNEY TRANSPLANT REJECTION [None]
  - WOUND DRAINAGE [None]
